FAERS Safety Report 9850003 (Version 2)
Quarter: 2014Q1

REPORT INFORMATION
  Report Type: Spontaneous
  Country: US (occurrence: US)
  Receive Date: 20140128
  Receipt Date: 20140307
  Transmission Date: 20141002
  Serious: Yes (Other)
  Sender: FDA-Public Use
  Company Number: US-ALLERGAN-1401033US

PATIENT
  Age: 61 Year
  Sex: Female

DRUGS (5)
  1. LUMIGAN 0.01% [Suspect]
     Indication: GLAUCOMA
     Dosage: 1 DROP IN EACH EYE AT BEDTIME
     Route: 047
     Dates: start: 2013, end: 2013
  2. COMBIGAN[R] [Suspect]
     Indication: GLAUCOMA
     Dosage: 1 DROP IN EACH EYE TWICE DAILY
     Route: 047
     Dates: start: 201310, end: 20131104
  3. ISTALOL [Concomitant]
     Indication: PRODUCT USED FOR UNKNOWN INDICATION
  4. THERA TEARS [Concomitant]
  5. VITAMINS NOS [Concomitant]

REACTIONS (4)
  - Visual field defect [Not Recovered/Not Resolved]
  - Drug hypersensitivity [Unknown]
  - Dacryostenosis acquired [Not Recovered/Not Resolved]
  - Intraocular pressure increased [Unknown]
